FAERS Safety Report 22048021 (Version 1)
Quarter: 2023Q1

REPORT INFORMATION
  Report Type: Spontaneous
  Country: US (occurrence: US)
  Receive Date: 20230301
  Receipt Date: 20230301
  Transmission Date: 20230418
  Serious: No
  Sender: FDA-Public Use
  Company Number: US-ELI_LILLY_AND_COMPANY-US202302013367

PATIENT
  Age: 48 Year
  Sex: Female

DRUGS (4)
  1. HUMALOG KWIKPEN [Suspect]
     Active Substance: INSULIN LISPRO
     Indication: Type 1 diabetes mellitus
     Dosage: 66 U, UNKNOWN
     Route: 058
  2. HUMALOG KWIKPEN [Suspect]
     Active Substance: INSULIN LISPRO
     Dosage: 66 U, UNKNOWN
     Route: 058
  3. HUMALOG [Suspect]
     Active Substance: INSULIN LISPRO
     Indication: Type 1 diabetes mellitus
     Dosage: UNK, UNKNOWN
     Route: 058
  4. TRESIBA [Concomitant]
     Active Substance: INSULIN DEGLUDEC
     Indication: Type 1 diabetes mellitus
     Dosage: UNK

REACTIONS (3)
  - Blood glucose increased [Unknown]
  - Wrong technique in product usage process [Unknown]
  - Drug ineffective [Unknown]

NARRATIVE: CASE EVENT DATE: 20230222
